FAERS Safety Report 25218590 (Version 2)
Quarter: 2025Q4

REPORT INFORMATION
  Report Type: Spontaneous
  Country: CA (occurrence: CA)
  Receive Date: 20250421
  Receipt Date: 20251029
  Transmission Date: 20260117
  Serious: Yes (Other)
  Sender: AMGEN
  Company Number: CA-AMGEN-CANSP2025074497

PATIENT
  Sex: Female

DRUGS (1)
  1. PROLIA [Suspect]
     Active Substance: DENOSUMAB
     Indication: Osteoporosis postmenopausal
     Dosage: UNK, (SOLUTION SUBCUTANEOUS, PRESERVATI VE-FREE)
     Route: 065

REACTIONS (2)
  - Multiple fractures [Unknown]
  - Thyroid disorder [Unknown]
